FAERS Safety Report 5362292-4 (Version None)
Quarter: 2007Q2

REPORT INFORMATION
  Report Type: 
  Country: None (occurrence: None)
  Receive Date: 20070619
  Receipt Date: 20070613
  Transmission Date: 20071010
  Serious: Yes (Hospitalization)
  Sender: FDA-Public Use
  Company Number: A0656640A

PATIENT
  Sex: Female

DRUGS (4)
  1. LOTRONEX [Suspect]
     Indication: IRRITABLE BOWEL SYNDROME
     Route: 048
     Dates: start: 20070101, end: 20070101
  2. IMODIUM [Concomitant]
  3. HRT [Concomitant]
  4. BLOOD PRESSURE MEDICATION [Concomitant]

REACTIONS (4)
  - COLITIS ISCHAEMIC [None]
  - HAEMORRHAGE [None]
  - PAIN [None]
  - RECTAL HAEMORRHAGE [None]
